FAERS Safety Report 16599436 (Version 2)
Quarter: 2020Q1

REPORT INFORMATION
  Report Type: Spontaneous
  Country: US (occurrence: US)
  Receive Date: 20190719
  Receipt Date: 20200310
  Transmission Date: 20200409
  Serious: Yes (Death, Life-Threatening, Other)
  Sender: FDA-Public Use
  Company Number: US-AMGEN-USASP2019114497

PATIENT

DRUGS (1)
  1. CARFILZOMIB [Suspect]
     Active Substance: CARFILZOMIB
     Indication: PLASMA CELL MYELOMA
     Dosage: UNK
     Route: 065

REACTIONS (11)
  - Graft versus host disease [Fatal]
  - Hypertension [Unknown]
  - Pulmonary hypertension [Unknown]
  - Angina pectoris [Unknown]
  - Off label use [Unknown]
  - Plasma cell myeloma [Fatal]
  - Cardiac failure [Fatal]
  - Respiratory failure [Fatal]
  - Arrhythmia [Unknown]
  - Acute coronary syndrome [Unknown]
  - Therapy partial responder [Unknown]
